FAERS Safety Report 10537687 (Version 2)
Quarter: 2014Q4

REPORT INFORMATION
  Report Type: Spontaneous
  Country: DE (occurrence: DE)
  Receive Date: 20141023
  Receipt Date: 20141118
  Transmission Date: 20150529
  Serious: Yes (Other)
  Sender: FDA-Public Use
  Company Number: DE-ABBVIE-14P-062-1298072-00

PATIENT
  Age: 3 Year
  Sex: Male

DRUGS (1)
  1. VALPROIC ACID. [Suspect]
     Active Substance: VALPROIC ACID
     Indication: EPILEPSY
     Route: 065

REACTIONS (4)
  - Hypotonia [Recovered/Resolved]
  - Seizure [Recovered/Resolved]
  - Lethargy [Recovered/Resolved]
  - Stupor [Recovered/Resolved]
